FAERS Safety Report 7786293-1 (Version None)
Quarter: 2011Q3

REPORT INFORMATION
  Report Type: 
  Country: None (occurrence: None)
  Receive Date: 20110929
  Receipt Date: 20110920
  Transmission Date: 20111222
  Serious: Yes (Other)
  Sender: FDA-Public Use
  Company Number: PHHY2011BR80625

PATIENT
  Age: 35 Year
  Sex: Male

DRUGS (15)
  1. LEVOTHYROXINE SODIUM [Concomitant]
  2. CLOZAPINE [Interacting]
     Dosage: 50 MG, UNK
  3. CITALOPRAM [Concomitant]
     Dosage: 40 MG, UNK
  4. LAMICTAL [Concomitant]
     Dosage: 200 MG, UNK
  5. CLOZAPINE [Suspect]
     Indication: BIPOLAR DISORDER
     Dosage: 100 MG PLUS 25 MG BID
  6. ZYPREXA [Concomitant]
  7. CLONAZEPAM [Concomitant]
  8. CITALOPRAM [Concomitant]
     Dosage: 2 TABS DAILY
  9. LAMICTAL [Concomitant]
  10. SEROQUEL [Concomitant]
  11. TRILEPTAL [Interacting]
  12. DEPAKOTE [Concomitant]
     Dosage: 150 MG
     Dates: start: 20110909
  13. INVEGA [Concomitant]
  14. DEPAKOTE [Concomitant]
     Dosage: 500 MG
  15. DEPAKOTE [Concomitant]
     Dosage: 1000 MG

REACTIONS (10)
  - VOMITING [None]
  - HALLUCINATION [None]
  - NAUSEA [None]
  - DRUG INTERACTION [None]
  - HYPOTENSION [None]
  - ANAL HAEMORRHAGE [None]
  - HAEMORRHAGE [None]
  - EPISTAXIS [None]
  - HAEMATOCHEZIA [None]
  - DELIRIUM [None]
